FAERS Safety Report 18330495 (Version 2)
Quarter: 2021Q3

REPORT INFORMATION
  Report Type: Spontaneous
  Country: DE (occurrence: DE)
  Receive Date: 20200930
  Receipt Date: 20210728
  Transmission Date: 20211014
  Serious: Yes (Hospitalization)
  Sender: FDA-Public Use
  Company Number: NVSC2020DE261931

PATIENT
  Age: 64 Year
  Sex: Female
  Weight: 55 kg

DRUGS (18)
  1. OCRELIZUMAB. [Suspect]
     Active Substance: OCRELIZUMAB
     Indication: RELAPSING MULTIPLE SCLEROSIS
     Dosage: 300 MG
     Route: 042
     Dates: start: 20190423, end: 20190508
  2. RANITIDINE. [Concomitant]
     Active Substance: RANITIDINE
     Dosage: 300 MG, 0.5 DAY (END DATE IS ONGOING)
     Route: 048
     Dates: start: 20190507
  3. SATIVEX [Concomitant]
     Active Substance: NABIXIMOLS
     Indication: PRODUCT USED FOR UNKNOWN INDICATION
     Dosage: UNK, 0.33 DAY (END DATE IS ONGOING)
     Route: 048
  4. OXCARBAZEPINE. [Suspect]
     Active Substance: OXCARBAZEPINE
     Indication: TRIGEMINAL NEURALGIA
     Dosage: 1200 MG
     Route: 048
     Dates: start: 202003
  5. TAVOR [Concomitant]
     Indication: PAIN
     Dosage: 1 MG
     Route: 048
     Dates: start: 20200326, end: 202003
  6. VENLAFAXINE [Concomitant]
     Active Substance: VENLAFAXINE HYDROCHLORIDE
     Dosage: 37.5 MG, 0.5 DAY (END DATE IS ONGOING)
     Route: 048
     Dates: start: 20200418
  7. AERIUS [Concomitant]
     Indication: PRODUCT USED FOR UNKNOWN INDICATION
     Dosage: 5 MG, 0.5 DAY
     Route: 048
     Dates: start: 20190422, end: 20190424
  8. LORAZEPAM. [Suspect]
     Active Substance: LORAZEPAM
     Indication: TRIGEMINAL NEURALGIA
     Dosage: 2 MG, QD
     Route: 048
     Dates: start: 20200325, end: 20200325
  9. RANITIDINE. [Concomitant]
     Active Substance: RANITIDINE
     Indication: PRODUCT USED FOR UNKNOWN INDICATION
     Dosage: 300 MG, 0.5 DAY
     Route: 048
     Dates: start: 20190422, end: 20190424
  10. PREDNISOLONE. [Concomitant]
     Active Substance: PREDNISOLONE
     Indication: PRODUCT USED FOR UNKNOWN INDICATION
     Dosage: 100 MG, QD
     Route: 042
     Dates: start: 20190423
  11. OCRELIZUMAB. [Suspect]
     Active Substance: OCRELIZUMAB
     Dosage: 600 MG
     Route: 042
     Dates: start: 20191017
  12. AERIUS [Concomitant]
     Dosage: 5 MG, 0.5 DAY (END DATE IS ONGOING)
     Route: 048
     Dates: start: 20190507
  13. VENLAFAXINE [Concomitant]
     Active Substance: VENLAFAXINE HYDROCHLORIDE
     Indication: PRODUCT USED FOR UNKNOWN INDICATION
     Dosage: 37.5 MG, QD
     Route: 048
     Dates: start: 20200410, end: 20200417
  14. OXCARBAZEPINE. [Suspect]
     Active Substance: OXCARBAZEPINE
     Indication: ATAXIA
     Dosage: 150 MG, 0.25 DAY
     Route: 048
  15. TAVOR [Concomitant]
     Indication: MUSCLE SPASTICITY
  16. DEKRISTOL [Concomitant]
     Active Substance: CHOLECALCIFEROL
     Indication: PROPHYLAXIS
     Dosage: 20000 IU, QW (END DATE IS ONGOING)
     Route: 048
     Dates: start: 20190415
  17. OXCARBAZEPINE. [Suspect]
     Active Substance: OXCARBAZEPINE
     Dosage: 140 MG
     Route: 048
  18. PREDNISOLONE. [Concomitant]
     Active Substance: PREDNISOLONE
     Dosage: 100 MG, QD (END DATE IS ONGOING)
     Route: 042
     Dates: start: 20190508

REACTIONS (4)
  - Trigeminal neuralgia [Unknown]
  - Gait disturbance [Recovered/Resolved]
  - Trigeminal neuralgia [Unknown]
  - Ataxia [Recovered/Resolved]

NARRATIVE: CASE EVENT DATE: 20200326
